FAERS Safety Report 7560956-5 (Version None)
Quarter: 2011Q2

REPORT INFORMATION
  Report Type: 
  Country: None (occurrence: None)
  Receive Date: 20110621
  Receipt Date: 20110607
  Transmission Date: 20111010
  Serious: Yes (Other)
  Sender: FDA-Public Use
  Company Number: GB-JNJFOC-20101104765

PATIENT
  Sex: Female
  Weight: 56 kg

DRUGS (2)
  1. HYDROCORTISONE [Suspect]
     Indication: PREMEDICATION
     Route: 042
     Dates: start: 20101211
  2. INFLIXIMAB, RECOMBINANT [Suspect]
     Indication: CROHN'S DISEASE
     Dosage: 1ST DOSE; 5 MG/KG; 6 TOTAL INFUSIONS
     Route: 042
     Dates: start: 20101211

REACTIONS (4)
  - LOSS OF CONSCIOUSNESS [None]
  - INFUSION RELATED REACTION [None]
  - TACHYCARDIA [None]
  - HYPERHIDROSIS [None]
